FAERS Safety Report 15740008 (Version 1)
Quarter: 2018Q4

REPORT INFORMATION
  Report Type: Other
  Country: ES (occurrence: ES)
  Receive Date: 20181219
  Receipt Date: 20181219
  Transmission Date: 20190205
  Serious: Yes (Hospitalization, Other)
  Sender: FDA-Public Use
  Company Number: ES-APOTEX-2018AP027356

PATIENT
  Age: 83 Year
  Sex: Female

DRUGS (12)
  1. ESPIRONOLACTONA [Suspect]
     Active Substance: SPIRONOLACTONE
     Indication: CARDIAC FAILURE
     Dosage: 0-1-0 (25 MG ONCE A DAY)
     Route: 048
     Dates: start: 20170801, end: 20171113
  2. AKINETON [Concomitant]
     Active Substance: BIPERIDEN HYDROCHLORIDE
     Indication: PRODUCT USED FOR UNKNOWN INDICATION
     Dosage: 1-0-1 (2 MG TWICE A DAY)
     Route: 048
  3. EUTIROX [Concomitant]
     Active Substance: LEVOTHYROXINE SODIUM
     Indication: PRODUCT USED FOR UNKNOWN INDICATION
     Dosage: 1-0-0 (50 ?G ONCE A DAY)
     Route: 048
  4. RISPERDAL CONSTA [Concomitant]
     Active Substance: RISPERIDONE
     Indication: PRODUCT USED FOR UNKNOWN INDICATION
     Dosage: 0-0-1 (3 MG ONCE A DAY)
     Route: 048
  5. FUROSEMIDE. [Suspect]
     Active Substance: FUROSEMIDE
     Indication: CARDIAC FAILURE
     Dosage: 1-1-1 (40 MG THRICE A DAY)
     Route: 048
     Dates: start: 2017
  6. RISPERDAL CONSTA [Concomitant]
     Active Substance: RISPERIDONE
     Indication: PRODUCT USED FOR UNKNOWN INDICATION
     Dosage: 1-1-0 (2 MG ONCE A DAY)
     Route: 048
  7. UNIKET [Concomitant]
     Active Substance: ISOSORBIDE MONONITRATE
     Indication: PRODUCT USED FOR UNKNOWN INDICATION
     Dosage: 1-0-1 (20 MG TWICE A DAY)
     Route: 048
  8. PARACETAMOL A [Concomitant]
     Active Substance: ACETAMINOPHEN
     Indication: PRODUCT USED FOR UNKNOWN INDICATION
     Dosage: 1-1-1 (1 G THRICE A DAY)
     Route: 065
  9. OMEPRAZOL                          /00661201/ [Concomitant]
     Active Substance: OMEPRAZOLE
     Indication: PRODUCT USED FOR UNKNOWN INDICATION
     Dosage: 1-0-0 (1 DF ONCE A DAY)
     Route: 048
  10. ADIRO AP [Suspect]
     Active Substance: ASPIRIN
     Indication: ACUTE MYOCARDIAL INFARCTION
     Dosage: 0-1-0 (100 MG ONCE A DAY)
     Route: 048
     Dates: start: 201611
  11. CLOPIDOGREL [Suspect]
     Active Substance: CLOPIDOGREL BISULFATE
     Indication: ACUTE MYOCARDIAL INFARCTION
     Dosage: 0-1-0 (75 MG ONCE A DAY)
     Route: 048
     Dates: start: 201611
  12. ORFIDAL [Concomitant]
     Active Substance: LORAZEPAM
     Indication: PRODUCT USED FOR UNKNOWN INDICATION
     Dosage: 1-1-1 (1 DF THRICE A DAY)
     Route: 048

REACTIONS (1)
  - Acute kidney injury [Recovered/Resolved]

NARRATIVE: CASE EVENT DATE: 201711
